FAERS Safety Report 5608989-X (Version None)
Quarter: 2008Q1

REPORT INFORMATION
  Report Type: 
  Country: None (occurrence: None)
  Receive Date: 20080131
  Receipt Date: 20080125
  Transmission Date: 20080703
  Serious: Yes (Death, Other)
  Sender: FDA-Public Use
  Company Number: PHBS2008MT01380

PATIENT
  Sex: Male

DRUGS (3)
  1. IMATINIB [Suspect]
     Indication: CHRONIC MYELOID LEUKAEMIA
     Dosage: 600 MG/D
     Route: 065
  2. IMATINIB [Suspect]
     Dosage: 400 MG/D
     Route: 065
  3. IMATINIB [Suspect]
     Dosage: 150 MG/D
     Route: 065

REACTIONS (9)
  - BLAST CRISIS IN MYELOGENOUS LEUKAEMIA [None]
  - BONE MARROW FAILURE [None]
  - GASTROINTESTINAL HAEMORRHAGE [None]
  - LUNG INFECTION [None]
  - MALIGNANT NEOPLASM PROGRESSION [None]
  - MYELODYSPLASTIC SYNDROME [None]
  - PANCYTOPENIA [None]
  - PULMONARY HAEMORRHAGE [None]
  - THROMBOCYTOPENIA [None]
